FAERS Safety Report 26143726 (Version 1)
Quarter: 2025Q4

REPORT INFORMATION
  Report Type: Spontaneous
  Country: CH (occurrence: CH)
  Receive Date: 20251211
  Receipt Date: 20251211
  Transmission Date: 20260118
  Serious: Yes (Other)
  Sender: AMGEN
  Company Number: None

PATIENT
  Age: 75 Year
  Sex: Female
  Weight: 55 kg

DRUGS (4)
  1. EVENITY [Suspect]
     Active Substance: ROMOSOZUMAB-AQQG
     Indication: Osteoporotic fracture
     Dosage: 210 MILLIGRAM, MONTHLY (QM)
     Route: 058
     Dates: start: 20230814, end: 20240227
  2. ASPIRIN [Concomitant]
     Active Substance: ASPIRIN
     Indication: Prophylaxis
     Dosage: 100 MILLIGRAM, ONCE DAILY (QD)
     Route: 048
     Dates: start: 20141121
  3. ATORVASTATIN [Concomitant]
     Active Substance: ATORVASTATIN
     Indication: Prophylaxis
     Dosage: 20 MILLIGRAM, ONCE DAILY (QD)
     Route: 048
     Dates: start: 20230913
  4. CALCIUM CARBONATE\CHOLECALCIFEROL [Concomitant]
     Active Substance: CALCIUM CARBONATE\CHOLECALCIFEROL
     Indication: Osteoporosis
     Dosage: 1 DOSAGE FORM, ONCE DAILY (QD)
     Route: 048
     Dates: start: 20230530

REACTIONS (3)
  - Malaise [Recovered/Resolved]
  - Vomiting [Recovered/Resolved]
  - Peripheral swelling [Recovered/Resolved]

NARRATIVE: CASE EVENT DATE: 20230815
